FAERS Safety Report 17727596 (Version 1)
Quarter: 2020Q2

REPORT INFORMATION
  Report Type: Report from Study
  Country: IN (occurrence: IN)
  Receive Date: 20200430
  Receipt Date: 20200430
  Transmission Date: 20200714
  Serious: Yes (Other)
  Sender: FDA-Public Use
  Company Number: NVSC2020IN113174

PATIENT
  Age: 48 Year
  Sex: Male
  Weight: 85 kg

DRUGS (3)
  1. AMARYL [Concomitant]
     Active Substance: GLIMEPIRIDE
     Indication: DIABETES MELLITUS
     Dosage: 1 DF, QD (1-0-0, PRE MEAL)
     Route: 048
  2. GALVUS MET [Suspect]
     Active Substance: METFORMIN HYDROCHLORIDE\VILDAGLIPTIN
     Indication: DIABETES MELLITUS
     Dosage: 1 DF, BID (SINCE 10 YEARS) (1-0-1, PRE MEAL, POST MEAL)
     Route: 048
  3. THYROXINE [Concomitant]
     Active Substance: LEVOTHYROXINE
     Indication: THYROID DISORDER
     Dosage: UNK
     Route: 048

REACTIONS (6)
  - Weight increased [Unknown]
  - Glycosylated haemoglobin [Unknown]
  - Thyroxine decreased [Unknown]
  - Blood thyroid stimulating hormone increased [Unknown]
  - Hyperglycaemia [Unknown]
  - Tri-iodothyronine decreased [Unknown]

NARRATIVE: CASE EVENT DATE: 20200121
